FAERS Safety Report 12725496 (Version 4)
Quarter: 2016Q4

REPORT INFORMATION
  Report Type: Spontaneous
  Country: JP (occurrence: JP)
  Receive Date: 20160908
  Receipt Date: 20161124
  Transmission Date: 20170207
  Serious: Yes (Hospitalization, Other)
  Sender: FDA-Public Use
  Company Number: JP-ASTRAZENECA-2016SE95231

PATIENT
  Age: 57 Year
  Sex: Male
  Weight: 55 kg

DRUGS (11)
  1. BELSOMRA [Concomitant]
     Active Substance: SUVOREXANT
  2. MYSLEE [Suspect]
     Active Substance: ZOLPIDEM TARTRATE
     Indication: ANALGESIC THERAPY
     Dosage: 30MG AT DAYTIME AND 10 MG AT NIGHT, TWICE DAILY
     Route: 048
     Dates: start: 201209, end: 20160727
  3. OLANZAPINE. [Concomitant]
     Active Substance: OLANZAPINE
  4. ZOLPIDEM [Concomitant]
     Active Substance: ZOLPIDEM\ZOLPIDEM TARTRATE
  5. LORAZEPAM A [Suspect]
     Active Substance: LORAZEPAM
     Indication: INSOMNIA
     Route: 048
     Dates: start: 201406, end: 20160822
  6. SERENACE [Concomitant]
     Active Substance: HALOPERIDOL
  7. MYSLEE [Suspect]
     Active Substance: ZOLPIDEM TARTRATE
     Indication: INSOMNIA
     Dosage: 30MG AT DAYTIME AND 10 MG AT NIGHT, TWICE DAILY
     Route: 048
     Dates: start: 201209, end: 20160727
  8. SEROQUEL [Suspect]
     Active Substance: QUETIAPINE FUMARATE
     Indication: SCHIZOPHRENIA
     Route: 048
     Dates: start: 20140814, end: 20160727
  9. LEXAPRO [Concomitant]
     Active Substance: ESCITALOPRAM OXALATE
  10. ROZEREM [Concomitant]
     Active Substance: RAMELTEON
  11. ROHYPNOL [Concomitant]
     Active Substance: FLUNITRAZEPAM

REACTIONS (10)
  - Withdrawal syndrome [Recovered/Resolved]
  - C-reactive protein increased [Unknown]
  - Pneumonia aspiration [Recovered/Resolved]
  - Delirium [Recovered/Resolved]
  - Product use issue [Recovered/Resolved]
  - Delusion [Unknown]
  - Intentional overdose [Unknown]
  - Hypophagia [Recovered/Resolved]
  - Hypersensitivity [Unknown]
  - Off label use [Recovered/Resolved]

NARRATIVE: CASE EVENT DATE: 201209
